FAERS Safety Report 16531752 (Version 2)
Quarter: 2021Q1

REPORT INFORMATION
  Report Type: Spontaneous
  Country: FR (occurrence: FR)
  Receive Date: 20190705
  Receipt Date: 20210312
  Transmission Date: 20210419
  Serious: Yes (Hospitalization, Other)
  Sender: FDA-Public Use
  Company Number: FR-PFIZER INC-2019282454

PATIENT
  Age: 31 Year
  Sex: Female
  Weight: 62 kg

DRUGS (4)
  1. ETHINYLESTRADIOL/LEVONORGESTREL [Suspect]
     Active Substance: ETHINYL ESTRADIOL\LEVONORGESTREL
     Indication: CONTRACEPTION
     Dosage: UNK
     Route: 048
  2. LAMICTAL [Concomitant]
     Active Substance: LAMOTRIGINE
     Indication: EPILEPSY
     Dosage: 500 MG, DAILY
     Route: 048
     Dates: start: 2010
  3. VIMPAT [Suspect]
     Active Substance: LACOSAMIDE
     Indication: EPILEPSY
     Dosage: 200 MG, 1X/DAY
     Route: 048
     Dates: start: 2012
  4. URBANYL [Concomitant]
     Active Substance: CLOBAZAM
     Indication: EPILEPSY
     Dosage: 10 MG, DAILY
     Route: 048
     Dates: start: 2010

REACTIONS (4)
  - Epilepsy [Unknown]
  - Drug ineffective [Recovered/Resolved]
  - Maternal exposure during pregnancy [Unknown]
  - Retained placenta or membranes [Unknown]

NARRATIVE: CASE EVENT DATE: 201412
